FAERS Safety Report 10946833 (Version 2)
Quarter: 2015Q2

REPORT INFORMATION
  Report Type: Spontaneous
  Country: US (occurrence: US)
  Receive Date: 20150323
  Receipt Date: 20150420
  Transmission Date: 20150821
  Serious: No
  Sender: FDA-Public Use
  Company Number: US-PFIZER INC-2015096410

PATIENT
  Age: 59 Year
  Sex: Female

DRUGS (4)
  1. CELEBREX [Interacting]
     Active Substance: CELECOXIB
     Dosage: UNK
  2. VIOXX [Interacting]
     Active Substance: ROFECOXIB
     Dosage: UNK
  3. NORPACE [Suspect]
     Active Substance: DISOPYRAMIDE PHOSPHATE
     Indication: ARRHYTHMIA
     Dosage: 150 MG, 2X/DAY
     Route: 048
  4. NORPACE [Interacting]
     Active Substance: DISOPYRAMIDE PHOSPHATE
     Indication: PALPITATIONS
     Dosage: 150MG 2 CAPS, 3X/DAY
     Route: 048

REACTIONS (2)
  - Drug ineffective [Unknown]
  - Drug interaction [Unknown]
